FAERS Safety Report 6101668-4 (Version None)
Quarter: 2009Q1

REPORT INFORMATION
  Report Type: 
  Country: None (occurrence: None)
  Receive Date: 20090304
  Receipt Date: 20090223
  Transmission Date: 20090719
  Serious: Yes (Hospitalization)
  Sender: FDA-Public Use
  Company Number: US-JNJFOC-20090206130

PATIENT
  Age: 69 Year
  Sex: Male
  Weight: 92.08 kg

DRUGS (6)
  1. TOPAMAX [Suspect]
     Route: 048
  2. TOPAMAX [Suspect]
     Indication: TREMOR
     Route: 048
  3. BUSPIRONE HCL [Concomitant]
  4. METFORMIN HCL [Concomitant]
     Indication: DIABETES MELLITUS
  5. LORAZEPAM [Concomitant]
     Indication: ANXIETY
  6. SERTRALINE [Concomitant]
     Indication: DEPRESSION

REACTIONS (5)
  - CONDITION AGGRAVATED [None]
  - DEHYDRATION [None]
  - FALL [None]
  - FEELING ABNORMAL [None]
  - URINARY TRACT INFECTION [None]
